FAERS Safety Report 23146428 (Version 1)
Quarter: 2023Q4

REPORT INFORMATION
  Report Type: Spontaneous
  Country: US (occurrence: US)
  Receive Date: 20231104
  Receipt Date: 20231104
  Transmission Date: 20240110
  Serious: No
  Sender: FDA-Public Use
  Company Number: US-GLENMARK PHARMACEUTICALS-2023GMK085259

PATIENT

DRUGS (1)
  1. RYALTRIS [Suspect]
     Active Substance: MOMETASONE FUROATE MONOHYDRATE\OLOPATADINE HYDROCHLORIDE
     Indication: Hypersensitivity
     Dosage: 2 DOSAGE FORM, QD (SPRAY 2 SQUIRTS IN THE NOSTRILS DAILY)
     Route: 045
     Dates: start: 20230917

REACTIONS (4)
  - Inappropriate schedule of product administration [Unknown]
  - Drug effective for unapproved indication [Unknown]
  - Somnolence [Recovered/Resolved]
  - Fatigue [Recovered/Resolved]
